FAERS Safety Report 18717364 (Version 1)
Quarter: 2021Q1

REPORT INFORMATION
  Report Type: Spontaneous
  Country: ES (occurrence: ES)
  Receive Date: 20210108
  Receipt Date: 20210108
  Transmission Date: 20210419
  Serious: Yes (Other)
  Sender: FDA-Public Use
  Company Number: NVSC2021ES000781

PATIENT
  Sex: Male

DRUGS (1)
  1. NITRODERM [Suspect]
     Active Substance: NITROGLYCERIN
     Indication: PRODUCT USED FOR UNKNOWN INDICATION
     Dosage: UNK
     Route: 061
     Dates: start: 20201109, end: 20201114

REACTIONS (2)
  - Application site burn [Recovering/Resolving]
  - Administration site irritation [Recovering/Resolving]

NARRATIVE: CASE EVENT DATE: 20201110
